FAERS Safety Report 24937770 (Version 1)
Quarter: 2025Q1

REPORT INFORMATION
  Report Type: Spontaneous
  Country: IT (occurrence: IT)
  Receive Date: 20250206
  Receipt Date: 20250206
  Transmission Date: 20250409
  Serious: Yes (Hospitalization)
  Sender: BAUSCH AND LOMB
  Company Number: None

PATIENT
  Age: 66 Year
  Sex: Male

DRUGS (1)
  1. AZATHIOPRINE [Suspect]
     Active Substance: AZATHIOPRINE
     Indication: Multiple sclerosis
     Route: 048
     Dates: start: 2014, end: 20250117

REACTIONS (1)
  - Intraductal papillary-mucinous carcinoma of pancreas [Not Recovered/Not Resolved]

NARRATIVE: CASE EVENT DATE: 20241121
